FAERS Safety Report 18757406 (Version 1)
Quarter: 2021Q1

REPORT INFORMATION
  Report Type: Spontaneous
  Country: GB (occurrence: GB)
  Receive Date: 20210119
  Receipt Date: 20210119
  Transmission Date: 20210419
  Serious: Yes (Death)
  Sender: FDA-Public Use
  Company Number: GB-SHIONOGI, INC-2021000005

PATIENT

DRUGS (6)
  1. RIFAMPICIN [Concomitant]
     Active Substance: RIFAMPIN
     Indication: PRODUCT USED FOR UNKNOWN INDICATION
     Route: 065
  2. FETROJA [Suspect]
     Active Substance: CEFIDEROCOL SULFATE TOSYLATE
     Indication: STENOTROPHOMONAS INFECTION
     Dosage: 2 G, TID
     Route: 042
     Dates: start: 20201214, end: 20201222
  3. FETROJA [Suspect]
     Active Substance: CEFIDEROCOL SULFATE TOSYLATE
     Indication: SEPSIS
  4. LINEZOLID. [Concomitant]
     Active Substance: LINEZOLID
     Indication: PRODUCT USED FOR UNKNOWN INDICATION
     Route: 065
  5. FETROJA [Suspect]
     Active Substance: CEFIDEROCOL SULFATE TOSYLATE
     Indication: LOWER RESPIRATORY TRACT INFECTION
  6. DAPTOMYCIN. [Concomitant]
     Active Substance: DAPTOMYCIN
     Indication: PRODUCT USED FOR UNKNOWN INDICATION
     Route: 065

REACTIONS (1)
  - Death [Fatal]

NARRATIVE: CASE EVENT DATE: 20201222
